FAERS Safety Report 7046473-X (Version None)
Quarter: 2010Q4

REPORT INFORMATION
  Report Type: 
  Country: None (occurrence: None)
  Receive Date: 20101014
  Receipt Date: 20101006
  Transmission Date: 20110411
  Serious: Yes (Other)
  Sender: FDA-Public Use
  Company Number: US-ABBOTT-10P-163-0676730-00

PATIENT
  Age: 66 Year
  Sex: Female

DRUGS (3)
  1. HUMIRA [Suspect]
     Indication: RHEUMATOID ARTHRITIS
     Dates: start: 20080901, end: 20100701
  2. FORTEO [Concomitant]
     Indication: OSTEOPOROSIS
  3. VITAMIN D [Concomitant]
     Indication: VITAMIN SUPPLEMENTATION

REACTIONS (3)
  - HYPOAESTHESIA [None]
  - SCIATICA [None]
  - SPINAL FRACTURE [None]
